FAERS Safety Report 5473840-8 (Version None)
Quarter: 2007Q4

REPORT INFORMATION
  Report Type: 
  Country: None (occurrence: None)
  Receive Date: 20071001
  Receipt Date: 20070919
  Transmission Date: 20080405
  Serious: Yes (Other)
  Sender: FDA-Public Use
  Company Number: US-PFIZER INC-2007078676

PATIENT
  Sex: Female

DRUGS (3)
  1. CHANTIX [Suspect]
     Indication: SMOKING CESSATION THERAPY
     Route: 048
     Dates: start: 20070728, end: 20070801
  2. OXYCONTIN [Concomitant]
  3. NEURONTIN [Concomitant]

REACTIONS (7)
  - ABNORMAL DREAMS [None]
  - DYSKINESIA [None]
  - HEADACHE [None]
  - INCOHERENT [None]
  - INSOMNIA [None]
  - SLEEP TALKING [None]
  - SOMNOLENCE [None]
